FAERS Safety Report 7009931-X (Version None)
Quarter: 2010Q3

REPORT INFORMATION
  Report Type: 
  Country: None (occurrence: None)
  Receive Date: 20100923
  Receipt Date: 20100915
  Transmission Date: 20110219
  Serious: Yes (Hospitalization)
  Sender: FDA-Public Use
  Company Number: CN-B.I. PHARMACEUTICALS,INC./RIDGEFIELD-2010-DE-05114GD

PATIENT
  Age: 18 Year
  Sex: Male

DRUGS (4)
  1. PREDNISONE [Suspect]
     Indication: NEPHROTIC SYNDROME
     Dosage: 1 MG/KG/D
  2. DIPYRIDAMOLE [Suspect]
     Indication: NEPHROTIC SYNDROME
  3. DIURETICS [Suspect]
     Indication: NEPHROTIC SYNDROME
  4. TRIPTERYGIUM WILFORDII [Concomitant]
     Indication: NEPHROTIC SYNDROME

REACTIONS (9)
  - COMA [None]
  - CUSHINGOID [None]
  - HEADACHE [None]
  - HYPERTENSIVE CRISIS [None]
  - INTRACRANIAL VENOUS SINUS THROMBOSIS [None]
  - NAUSEA [None]
  - NEPHROTIC SYNDROME [None]
  - PAPILLOEDEMA [None]
  - VOMITING [None]
